FAERS Safety Report 5936033-3 (Version None)
Quarter: 2008Q4

REPORT INFORMATION
  Report Type: 
  Country: None (occurrence: None)
  Receive Date: 20081028
  Receipt Date: 20081020
  Transmission Date: 20090506
  Serious: Yes (Death, Hospitalization)
  Sender: FDA-Public Use
  Company Number: 2008SP021349

PATIENT
  Age: 60 Year
  Sex: Female

DRUGS (4)
  1. TEMODAL [Suspect]
     Indication: GLIOBLASTOMA MULTIFORME
     Dosage: 75 MG/M2; QD; PO
     Route: 048
  2. OMEPRAZOLE [Suspect]
     Indication: DRUG USE FOR UNKNOWN INDICATION
  3. CORTICOSTEROIDS (CORTICOSTEROIDS) [Suspect]
  4. VALPROIC ACID [Suspect]

REACTIONS (2)
  - APLASTIC ANAEMIA [None]
  - THERAPEUTIC AGENT TOXICITY [None]
